FAERS Safety Report 17395975 (Version 1)
Quarter: 2020Q1

REPORT INFORMATION
  Report Type: Spontaneous
  Country: US (occurrence: US)
  Receive Date: 20200207
  Receipt Date: 20200207
  Transmission Date: 20200409
  Serious: Yes (Hospitalization)
  Sender: FDA-Public Use
  Company Number: None

PATIENT
  Age: 20 Year
  Sex: Female

DRUGS (1)
  1. ZEJULA [Suspect]
     Active Substance: NIRAPARIB
     Indication: RENAL CANCER
     Route: 048
     Dates: start: 20191216

REACTIONS (3)
  - Platelet count decreased [None]
  - Renal cancer [None]
  - Off label use [None]

NARRATIVE: CASE EVENT DATE: 20200206
